FAERS Safety Report 23530770 (Version 1)
Quarter: 2024Q1

REPORT INFORMATION
  Report Type: Spontaneous
  Country: FR (occurrence: FR)
  Receive Date: 20240216
  Receipt Date: 20240216
  Transmission Date: 20240410
  Serious: Yes (Hospitalization)
  Sender: FDA-Public Use
  Company Number: None

PATIENT
  Age: 83 Year
  Sex: Female
  Weight: 90 kg

DRUGS (12)
  1. ATORVASTATIN [Suspect]
     Active Substance: ATORVASTATIN
     Indication: Diabetic dyslipidaemia
     Dates: end: 20240106
  2. REPAGLINIDE [Suspect]
     Active Substance: REPAGLINIDE
     Indication: Insulin-requiring type 2 diabetes mellitus
     Dates: end: 20240105
  3. PREGABALIN [Suspect]
     Active Substance: PREGABALIN
     Indication: Product used for unknown indication
     Dosage: 25MG IN THE MORNING AND 50MG IN THE EVENING
     Dates: end: 20240106
  4. CANDESARTAN CILEXETIL [Suspect]
     Active Substance: CANDESARTAN CILEXETIL
     Indication: Hypertension
     Dates: end: 20240106
  5. VENOFER [Concomitant]
     Active Substance: IRON SUCROSE
     Indication: End stage renal disease
  6. INSULIN DEGLUDEC [Concomitant]
     Active Substance: INSULIN DEGLUDEC
     Indication: Insulin-requiring type 2 diabetes mellitus
  7. FUROSEMIDE [Concomitant]
     Active Substance: FUROSEMIDE
     Indication: Product used for unknown indication
  8. ERYTHROPOIETIN [Concomitant]
     Active Substance: ERYTHROPOIETIN
     Indication: End stage renal disease
     Dosage: STRENGTH: 4000 IU/0.4 ML, SOLUTION FOR INJECTION IN PRE-FILLED SYRINGE, AT EACH DIALYSIS
  9. KARDEGIC [Concomitant]
     Active Substance: ASPIRIN DL-LYSINE
     Indication: Hypertensive heart disease
     Dosage: STRENGTH: 75 MG, POWDER FOR ORAL SOLUTION IN SACHET-DOSE
  10. SEVELAMER HYDROCHLORIDE [Concomitant]
     Active Substance: SEVELAMER HYDROCHLORIDE
     Indication: Dialysis related complication
  11. ENOXAPARIN SODIUM [Concomitant]
     Active Substance: ENOXAPARIN SODIUM
     Indication: Dialysis related complication
     Dosage: AT EACH DIALYSIS
  12. SITAGLIPTIN [Concomitant]
     Active Substance: SITAGLIPTIN
     Indication: Insulin-requiring type 2 diabetes mellitus

REACTIONS (1)
  - Neutropenia [Recovered/Resolved]

NARRATIVE: CASE EVENT DATE: 20240106
